FAERS Safety Report 5898164-6 (Version None)
Quarter: 2008Q3

REPORT INFORMATION
  Report Type: 
  Country: None (occurrence: None)
  Receive Date: 20080925
  Receipt Date: 20080917
  Transmission Date: 20090109
  Serious: Yes (Disabling)
  Sender: FDA-Public Use
  Company Number: DK-MERCK-0809DNK00009

PATIENT
  Age: 61 Year
  Sex: Male
  Weight: 108 kg

DRUGS (2)
  1. ZOCOR [Suspect]
     Indication: HYPERCHOLESTEROLAEMIA
     Route: 048
     Dates: start: 20050715, end: 20080707
  2. BENDROFLUMETHIAZIDE [Concomitant]
     Indication: DIURETIC THERAPY
     Route: 048

REACTIONS (1)
  - INTERSTITIAL LUNG DISEASE [None]
